FAERS Safety Report 6836154-7 (Version None)
Quarter: 2010Q3

REPORT INFORMATION
  Report Type: 
  Country: None (occurrence: None)
  Receive Date: 20100713
  Receipt Date: 20100629
  Transmission Date: 20110219
  Serious: Yes (Hospitalization)
  Sender: FDA-Public Use
  Company Number: US-JNJFOC-20100602943

PATIENT
  Sex: Male
  Weight: 16.78 kg

DRUGS (4)
  1. CHILDREN'S MOTRIN [Suspect]
     Route: 048
  2. CHILDREN'S MOTRIN [Suspect]
     Indication: PYREXIA
     Dosage: EVERY MONDAY
     Route: 048
  3. CHILDREN'S TYLENOL PLUS MULTI-SYMPTOM COLD [Suspect]
     Route: 048
  4. CHILDREN'S TYLENOL PLUS MULTI-SYMPTOM COLD [Suspect]
     Indication: PYREXIA
     Route: 048

REACTIONS (4)
  - BACTERIAL INFECTION [None]
  - MYCOPLASMA INFECTION [None]
  - SEPSIS [None]
  - TRANSMISSION OF AN INFECTIOUS AGENT VIA A MEDICINAL PRODUCT [None]
